FAERS Safety Report 14846031 (Version 1)
Quarter: 2018Q2

REPORT INFORMATION
  Report Type: Report from Study
  Country: US (occurrence: US)
  Receive Date: 20180504
  Receipt Date: 20180504
  Transmission Date: 20180711
  Serious: Yes (Death, Other)
  Sender: FDA-Public Use
  Company Number: US-ASTELLAS-2018US000893

PATIENT
  Age: 89 Year
  Sex: Male

DRUGS (1)
  1. ENZALUTAMIDE [Suspect]
     Active Substance: ENZALUTAMIDE
     Indication: HORMONE-REFRACTORY PROSTATE CANCER
     Route: 048
     Dates: start: 20160309, end: 20180103

REACTIONS (4)
  - Death [Fatal]
  - Prostatic specific antigen increased [Unknown]
  - General physical health deterioration [Unknown]
  - Mental impairment [Unknown]

NARRATIVE: CASE EVENT DATE: 201705
